FAERS Safety Report 5006127-8 (Version None)
Quarter: 2006Q1

REPORT INFORMATION
  Report Type: 
  Country: None (occurrence: None)
  Receive Date: 20060326
  Receipt Date: 20051229
  Transmission Date: 20060701
  Serious: Yes (Hospitalization)
  Sender: FDA-Public Use
  Company Number: 05P-163-0320872-00

PATIENT
  Age: 56 Year
  Sex: Female
  Weight: 112.3 kg

DRUGS (7)
  1. HUMIRA [Suspect]
     Indication: RHEUMATOID ARTHRITIS
     Dosage: 40 MG, 1 IN 1 WK, SUBCUTANEOUS
     Route: 058
     Dates: start: 20040101
  2. ISOPHANE INSULIN [Concomitant]
  3. LOSARTAN POTASSIUM [Concomitant]
  4. AMLODIPINE BESYLATE [Concomitant]
  5. ESOMEPRAZOLE [Concomitant]
  6. ATORVASTATIN CALCIUM [Concomitant]
  7. METHOTREXATE [Concomitant]

REACTIONS (1)
  - PNEUMONIA [None]
